FAERS Safety Report 25861515 (Version 1)
Quarter: 2025Q3

REPORT INFORMATION
  Report Type: Spontaneous
  Country: US (occurrence: US)
  Receive Date: 20250930
  Receipt Date: 20250930
  Transmission Date: 20251020
  Serious: No
  Sender: ABBVIE
  Company Number: US-ABBVIE-6476467

PATIENT
  Age: 46 Year
  Sex: Female
  Weight: 64 kg

DRUGS (1)
  1. LILETTA [Suspect]
     Active Substance: LEVONORGESTREL
     Indication: Contraception
     Route: 015
     Dates: start: 20250815

REACTIONS (3)
  - Vulvovaginal discomfort [Not Recovered/Not Resolved]
  - Device dislocation [Not Recovered/Not Resolved]
  - Device extrusion [Not Recovered/Not Resolved]

NARRATIVE: CASE EVENT DATE: 20250924
